FAERS Safety Report 23484075 (Version 1)
Quarter: 2024Q1

REPORT INFORMATION
  Report Type: Spontaneous
  Country: CN (occurrence: CN)
  Receive Date: 20240205
  Receipt Date: 20240205
  Transmission Date: 20240410
  Serious: Yes (Life-Threatening, Hospitalization, Other)
  Sender: FDA-Public Use
  Company Number: CN-HALEON-CNCH2024APC006603

PATIENT

DRUGS (5)
  1. IBUPROFEN [Suspect]
     Active Substance: IBUPROFEN
     Indication: Pyrexia
     Dosage: 1 DF, QD
     Route: 048
     Dates: start: 20240126, end: 20240126
  2. ACETAMINOPHEN\AMANTADINE HYDROCHLORIDE [Suspect]
     Active Substance: ACETAMINOPHEN\AMANTADINE HYDROCHLORIDE
     Indication: Pyrexia
     Dosage: 1 DF, QD
     Route: 048
     Dates: start: 20240126, end: 20240126
  3. OSELTAMIVIR [Suspect]
     Active Substance: OSELTAMIVIR
     Indication: Pyrexia
     Dosage: 75 MG, BID
     Route: 048
     Dates: start: 20240126, end: 20240126
  4. HERBALS [Suspect]
     Active Substance: HERBALS
     Indication: Pyrexia
     Dosage: 10 ML, QD
     Route: 042
     Dates: start: 20240126, end: 20240126
  5. VITAMIN B12 [Suspect]
     Active Substance: CYANOCOBALAMIN
     Indication: Pyrexia
     Dosage: 1 DF, QD
     Route: 042
     Dates: start: 20240126, end: 20240126

REACTIONS (9)
  - Drug-induced liver injury [Unknown]
  - Acute kidney injury [Unknown]
  - Multiple organ dysfunction syndrome [Unknown]
  - Liver injury [Unknown]
  - Depressed level of consciousness [Unknown]
  - Coma [Unknown]
  - Jaundice [Unknown]
  - Pyrexia [Unknown]
  - Condition aggravated [Unknown]

NARRATIVE: CASE EVENT DATE: 20240126
